FAERS Safety Report 7545528-0 (Version None)
Quarter: 2011Q2

REPORT INFORMATION
  Report Type: 
  Country: None (occurrence: None)
  Receive Date: 20110613
  Receipt Date: 20110613
  Transmission Date: 20111010
  Serious: Yes (Hospitalization)
  Sender: FDA-Public Use
  Company Number: None

PATIENT
  Sex: Female
  Weight: 85 kg

DRUGS (3)
  1. CYCLOPHOSPHAMIDE [Suspect]
     Dosage: 4640 MG
     Dates: end: 20110503
  2. DOXORUBICIN HYDROCHLORIDE [Suspect]
     Dosage: 464 MG
     Dates: end: 20110503
  3. TAXOL [Suspect]
     Dosage: 1800 MG
     Dates: end: 20110308

REACTIONS (9)
  - PROCEDURAL PAIN [None]
  - STAPHYLOCOCCAL INFECTION [None]
  - PNEUMONIA [None]
  - URINE LEUKOCYTE ESTERASE POSITIVE [None]
  - WHITE BLOOD CELL COUNT INCREASED [None]
  - WHITE BLOOD CELLS URINE POSITIVE [None]
  - BACTERIAL TEST POSITIVE [None]
  - LUNG INFILTRATION [None]
  - PYREXIA [None]
